FAERS Safety Report 4840445-9 (Version None)
Quarter: 2005Q4

REPORT INFORMATION
  Report Type: 
  Country: None (occurrence: None)
  Receive Date: 20051128
  Receipt Date: 20051128
  Transmission Date: 20060501
  Serious: Yes (Hospitalization, Disabling)
  Sender: FDA-Public Use
  Company Number: None

PATIENT
  Age: 64 Year
  Sex: Female
  Weight: 53.5244 kg

DRUGS (1)
  1. ACTONEL [Suspect]
     Indication: OSTEOPOROSIS
     Dosage: 35 MG  ONCE A WEEK  PO
     Route: 048
     Dates: start: 20020601, end: 20051120

REACTIONS (4)
  - ERYTHEMA [None]
  - GASTRIC ULCER [None]
  - HIATUS HERNIA [None]
  - UPPER GASTROINTESTINAL HAEMORRHAGE [None]
